FAERS Safety Report 18904027 (Version 13)
Quarter: 2021Q3

REPORT INFORMATION
  Report Type: Report from Study
  Country: US (occurrence: US)
  Receive Date: 20210217
  Receipt Date: 20210922
  Transmission Date: 20211014
  Serious: Yes (Hospitalization, Other)
  Sender: FDA-Public Use
  Company Number: US-GLAXOSMITHKLINE-US2021038362

PATIENT
  Age: 57 Year
  Sex: Female

DRUGS (1)
  1. BELANTAMAB MAFODOTIN. [Suspect]
     Active Substance: BELANTAMAB MAFODOTIN
     Indication: PRODUCT USED FOR UNKNOWN INDICATION
     Dosage: UNK
     Dates: start: 20210107

REACTIONS (22)
  - Pneumonia [Unknown]
  - Fatigue [Unknown]
  - Vomiting [Unknown]
  - Neutrophil count abnormal [Unknown]
  - Dyspnoea [Unknown]
  - Oropharyngeal pain [Recovered/Resolved]
  - White blood cell count decreased [Unknown]
  - Pain [Unknown]
  - Abdominal distension [Unknown]
  - Dry eye [Unknown]
  - Weight decreased [Unknown]
  - Visual acuity reduced [Not Recovered/Not Resolved]
  - Product dose omission issue [Unknown]
  - Decreased appetite [Unknown]
  - Transfusion [Unknown]
  - Headache [Recovered/Resolved]
  - Nausea [Unknown]
  - Spinal compression fracture [Unknown]
  - Vision blurred [Not Recovered/Not Resolved]
  - Keratopathy [Not Recovered/Not Resolved]
  - Back pain [Unknown]
  - Platelet count decreased [Unknown]

NARRATIVE: CASE EVENT DATE: 20210222
